FAERS Safety Report 12975887 (Version 1)
Quarter: 2016Q4

REPORT INFORMATION
  Report Type: Report from Study
  Country: US (occurrence: US)
  Receive Date: 20161125
  Receipt Date: 20161125
  Transmission Date: 20170207
  Serious: Yes (Hospitalization)
  Sender: FDA-Public Use
  Company Number: US-BAUSCH-BL-2016-028561

PATIENT
  Sex: Female

DRUGS (6)
  1. XENAZINE [Suspect]
     Active Substance: TETRABENAZINE
     Indication: DEVELOPMENTAL DELAY
  2. XENAZINE [Suspect]
     Active Substance: TETRABENAZINE
     Indication: MICROCEPHALY
  3. XENAZINE [Suspect]
     Active Substance: TETRABENAZINE
     Indication: CEREBELLAR HYPOPLASIA
  4. XENAZINE [Suspect]
     Active Substance: TETRABENAZINE
     Indication: GENERALISED TONIC-CLONIC SEIZURE
  5. XENAZINE [Suspect]
     Active Substance: TETRABENAZINE
     Indication: CHOREA
     Dosage: HALF TABLET IN THE MORNING, HALF TABLET AT NOON, 1 TABLET IN THE EVENING
     Route: 048
     Dates: start: 20141217
  6. XENAZINE [Suspect]
     Active Substance: TETRABENAZINE
     Indication: MYOCLONIC EPILEPSY

REACTIONS (4)
  - Hospitalisation [Unknown]
  - Drug dose omission [Unknown]
  - Off label use [Unknown]
  - Drug administration error [Unknown]
